FAERS Safety Report 6113041-3 (Version None)
Quarter: 2009Q1

REPORT INFORMATION
  Report Type: 
  Country: None (occurrence: None)
  Receive Date: 20090312
  Receipt Date: 20090305
  Transmission Date: 20090719
  Serious: Yes (Hospitalization)
  Sender: FDA-Public Use
  Company Number: DK-ABBOTT-09P-044-0560692-00

PATIENT
  Sex: Female
  Weight: 98 kg

DRUGS (2)
  1. REDUCTIL 15MG [Suspect]
     Indication: DRUG USE FOR UNKNOWN INDICATION
     Route: 048
     Dates: start: 20090217, end: 20090221
  2. ASPIRIN [Concomitant]
     Indication: HEADACHE
     Route: 048
     Dates: start: 19800101

REACTIONS (3)
  - CEREBRAL THROMBOSIS [None]
  - FATIGUE [None]
  - TIC [None]
